FAERS Safety Report 5382040-1 (Version None)
Quarter: 2007Q3

REPORT INFORMATION
  Report Type: 
  Country: None (occurrence: None)
  Receive Date: 20070709
  Receipt Date: 20070702
  Transmission Date: 20080115
  Serious: Yes (Hospitalization, Other)
  Sender: FDA-Public Use
  Company Number: US-ASTRAZENECA-2006UW23556

PATIENT
  Age: 323 Month
  Sex: Male
  Weight: 94.5 kg

DRUGS (4)
  1. SEROQUEL [Suspect]
     Indication: BIPOLAR DISORDER
     Route: 048
     Dates: start: 19980530, end: 20060601
  2. SEROQUEL [Suspect]
     Indication: DEPRESSION
     Route: 048
     Dates: start: 19980530, end: 20060601
  3. SEROQUEL [Suspect]
     Indication: SLEEP DISORDER
     Route: 048
     Dates: start: 19980530, end: 20060601
  4. LOBID [Concomitant]

REACTIONS (4)
  - DIABETES MELLITUS [None]
  - OBESITY [None]
  - PANCREATITIS [None]
  - SURGERY [None]
